FAERS Safety Report 4783617-4 (Version None)
Quarter: 2005Q3

REPORT INFORMATION
  Report Type: 
  Country: None (occurrence: None)
  Receive Date: 20050929
  Receipt Date: 20050926
  Transmission Date: 20060218
  Serious: Yes (Death)
  Sender: FDA-Public Use
  Company Number: PHFR2005GB03175

PATIENT
  Age: 56 Year
  Sex: Female
  Weight: 115 kg

DRUGS (5)
  1. CARBAMAZEPINE [Suspect]
     Indication: MOOD ALTERED
     Dosage: 200MG NOCTE
     Route: 048
     Dates: start: 20050701, end: 20050701
  2. RISPERIDONE [Concomitant]
     Indication: BIPOLAR DISORDER
     Dosage: 3 MG, BID
     Route: 048
     Dates: start: 20050601
  3. METFORMIN [Concomitant]
     Indication: DIABETES MELLITUS NON-INSULIN-DEPENDENT
     Dosage: 500 MG, BID
     Route: 048
     Dates: start: 20050401
  4. AMLODIPINE [Concomitant]
     Dosage: 5MG DAILY
     Route: 048
     Dates: start: 20050101
  5. PRIADEL [Concomitant]
     Indication: BIPOLAR DISORDER
     Dosage: 800MG NOCTE
     Route: 048
     Dates: start: 19980101

REACTIONS (1)
  - HEPATOTOXICITY [None]
